FAERS Safety Report 10962755 (Version 7)
Quarter: 2016Q4

REPORT INFORMATION
  Report Type: Spontaneous
  Country: JP (occurrence: JP)
  Receive Date: 20150327
  Receipt Date: 20161129
  Transmission Date: 20170206
  Serious: Yes (Death, Other)
  Sender: FDA-Public Use
  Company Number: JP-ASTRAZENECA-2015SE27302

PATIENT
  Age: 733 Month
  Sex: Male
  Weight: 80.5 kg

DRUGS (28)
  1. TRANSAMIN [Concomitant]
     Active Substance: TRANEXAMIC ACID
     Indication: PHARYNGITIS
     Route: 048
     Dates: start: 20150316, end: 20150317
  2. CRESTOR [Concomitant]
     Active Substance: ROSUVASTATIN CALCIUM
     Indication: HYPERCHOLESTEROLAEMIA
     Route: 048
     Dates: start: 20140205, end: 20150317
  3. GLIMEPIRIDE. [Concomitant]
     Active Substance: GLIMEPIRIDE
     Indication: TYPE 2 DIABETES MELLITUS
     Route: 048
     Dates: start: 20140205, end: 20150317
  4. METGLUCO [Concomitant]
     Active Substance: METFORMIN HYDROCHLORIDE
     Indication: TYPE 2 DIABETES MELLITUS
     Route: 048
     Dates: start: 20141009, end: 20150225
  5. METGLUCO [Concomitant]
     Active Substance: METFORMIN HYDROCHLORIDE
     Indication: TYPE 2 DIABETES MELLITUS
     Route: 048
     Dates: start: 20140306, end: 20140826
  6. COLONEL [Concomitant]
     Active Substance: CALCIUM POLYCARBOPHIL
     Indication: ENTEROCOLITIS
     Route: 048
     Dates: start: 20140508, end: 20150114
  7. BAYASPIRIN [Concomitant]
     Active Substance: ASPIRIN
     Indication: CEREBRAL INFARCTION
     Route: 048
     Dates: start: 20140508, end: 20150317
  8. VICTOZA [Concomitant]
     Active Substance: LIRAGLUTIDE
     Indication: TYPE 2 DIABETES MELLITUS
     Dosage: DOSE UNKNOWN
     Route: 065
     Dates: end: 2014
  9. LACB R [Concomitant]
     Indication: ENTEROCOLITIS
     Route: 048
     Dates: start: 20140508, end: 20150114
  10. MAGMITT [Concomitant]
     Active Substance: MAGNESIUM OXIDE
     Indication: CONSTIPATION
     Route: 048
     Dates: start: 20140508, end: 20150317
  11. SHINLUCK [Concomitant]
     Active Substance: SODIUM PICOSULFATE
     Route: 048
     Dates: start: 20140523
  12. PIOGLITAZONE. [Concomitant]
     Active Substance: PIOGLITAZONE
     Route: 048
     Dates: start: 20140827
  13. DEPAS [Concomitant]
     Active Substance: ETIZOLAM
     Dosage: 2.0MG UNKNOWN
     Route: 048
  14. AMOBAN [Concomitant]
     Active Substance: ZOPICLONE
     Dosage: 7.5MG AS REQUIRED
     Route: 048
  15. METGLUCO [Concomitant]
     Active Substance: METFORMIN HYDROCHLORIDE
     Indication: TYPE 2 DIABETES MELLITUS
     Route: 048
     Dates: start: 20140205, end: 20140305
  16. SENNOSIDE [Concomitant]
     Active Substance: SENNOSIDES
     Indication: CONSTIPATION
     Route: 048
     Dates: start: 20140508, end: 20150317
  17. FORXIGA [Suspect]
     Active Substance: DAPAGLIFLOZIN
     Indication: TYPE 2 DIABETES MELLITUS
     Route: 048
     Dates: start: 20140418, end: 20150317
  18. ROCEPHIN [Concomitant]
     Active Substance: CEFTRIAXONE SODIUM
     Indication: PNEUMONIA
     Route: 041
     Dates: start: 20150316, end: 20150317
  19. MUCODYNE [Concomitant]
     Active Substance: CARBOCYSTEINE
     Indication: PHARYNGITIS
     Route: 048
     Dates: start: 20150316, end: 20150317
  20. MICARDIS [Concomitant]
     Active Substance: TELMISARTAN
     Indication: HYPERTENSION
     Route: 048
     Dates: start: 20140508, end: 20150317
  21. ACTOS [Concomitant]
     Active Substance: PIOGLITAZONE HYDROCHLORIDE
     Indication: TYPE 2 DIABETES MELLITUS
     Dosage: DOSE UNKNOWN
     Route: 065
     Dates: start: 20140827
  22. AKINETON [Concomitant]
     Active Substance: BIPERIDEN HYDROCHLORIDE
     Route: 048
  23. TEGRETOL [Concomitant]
     Active Substance: CARBAMAZEPINE
     Dosage: 200.0MG UNKNOWN
     Route: 048
  24. EQUA [Suspect]
     Active Substance: VILDAGLIPTIN
     Indication: TYPE 2 DIABETES MELLITUS
     Route: 048
     Dates: start: 20140205, end: 20150317
  25. METGLUCO [Concomitant]
     Active Substance: METFORMIN HYDROCHLORIDE
     Indication: TYPE 2 DIABETES MELLITUS
     Route: 048
     Dates: start: 20150226
  26. LEVOTOMIN [Concomitant]
     Active Substance: LEVOMEPROMAZINE
     Route: 048
  27. METGLUCO [Concomitant]
     Active Substance: METFORMIN HYDROCHLORIDE
     Indication: TYPE 2 DIABETES MELLITUS
     Route: 048
     Dates: start: 20140910, end: 20141008
  28. ZETIA [Concomitant]
     Active Substance: EZETIMIBE
     Route: 048
     Dates: start: 20141218

REACTIONS (7)
  - Intentional product misuse [Unknown]
  - Ketoacidosis [Unknown]
  - Headache [Recovered/Resolved]
  - Decreased appetite [Unknown]
  - Pneumonia bacterial [Fatal]
  - Dehydration [Unknown]
  - Asphyxia [Fatal]

NARRATIVE: CASE EVENT DATE: 201403
